FAERS Safety Report 9767053 (Version 1)
Quarter: 2013Q4

REPORT INFORMATION
  Report Type: Spontaneous
  Country: US (occurrence: None)
  Receive Date: 20131216
  Receipt Date: 20131216
  Transmission Date: 20140711
  Serious: Yes (Other)
  Sender: FDA-Public Use
  Company Number: None

PATIENT
  Age: 61 Year
  Sex: Male

DRUGS (2)
  1. RIBAVIRIN [Suspect]
     Indication: HEPATITIS C
     Route: 048
     Dates: start: 20130828, end: 20131111
  2. PEGASYS [Concomitant]

REACTIONS (4)
  - Malaise [None]
  - Asthenia [None]
  - Vomiting [None]
  - Erythropoiesis abnormal [None]
